FAERS Safety Report 7496199-3 (Version None)
Quarter: 2011Q2

REPORT INFORMATION
  Report Type: 
  Country: None (occurrence: None)
  Receive Date: 20110523
  Receipt Date: 20110520
  Transmission Date: 20111010
  Serious: Yes (Hospitalization)
  Sender: FDA-Public Use
  Company Number: AT-ABBOTT-11P-009-0711141-00

PATIENT
  Age: 70 Year
  Sex: Male
  Weight: 101 kg

DRUGS (13)
  1. BISOPROLOL FUMARATE [Concomitant]
     Indication: PRODUCT USED FOR UNKNOWN INDICATION
     Dosage: 5 MG DAILY DOSE
     Route: 048
     Dates: start: 20100930
  2. NEORECORMON [Concomitant]
     Indication: PRODUCT USED FOR UNKNOWN INDICATION
     Dosage: 10000 IE ONCE A WEEK
     Route: 042
  3. LASIX [Concomitant]
     Indication: PRODUCT USED FOR UNKNOWN INDICATION
     Dosage: 500 MG DAILY DOSE
     Route: 048
     Dates: start: 20100930
  4. HYDAL [Concomitant]
     Indication: PRODUCT USED FOR UNKNOWN INDICATION
     Dosage: 1.3 MG DAILY DOSE
     Route: 048
     Dates: start: 20100930
  5. NITROLINGUAL [Concomitant]
     Indication: PRODUCT USED FOR UNKNOWN INDICATION
     Dosage: 0.8 MG DAILY DOSE
     Route: 048
     Dates: start: 20100930
  6. DOMINAL [Concomitant]
     Indication: PRODUCT USED FOR UNKNOWN INDICATION
     Dosage: 80 MG DAILY DOSE
     Route: 048
     Dates: start: 20100930
  7. ZEMPLAR [Suspect]
     Indication: HYPERPARATHYROIDISM
     Dates: start: 20101021
  8. SODIUM POLYSTYRENE SULFONATE [Concomitant]
     Indication: PRODUCT USED FOR UNKNOWN INDICATION
     Route: 048
     Dates: start: 20100930
  9. DIGIMERCK [Concomitant]
     Indication: PRODUCT USED FOR UNKNOWN INDICATION
     Dosage: 0.07 MG DAILY DOSE
     Route: 048
     Dates: start: 20100930
  10. RENAGEL [Concomitant]
     Indication: PRODUCT USED FOR UNKNOWN INDICATION
     Dosage: 2400 MG DAILY DOSE
     Route: 048
     Dates: start: 20100930
  11. ASPIRIN [Concomitant]
     Indication: PRODUCT USED FOR UNKNOWN INDICATION
     Dosage: 100 MG DAILY DOSE
     Route: 048
     Dates: start: 20100930
  12. DREISACARB [Concomitant]
     Indication: PRODUCT USED FOR UNKNOWN INDICATION
     Dosage: 1500 MG DAILY DOSE
     Route: 048
  13. PANTOLOC [Concomitant]
     Indication: PRODUCT USED FOR UNKNOWN INDICATION
     Dosage: 40 MG DAILY DOSE
     Route: 048
     Dates: start: 20100930

REACTIONS (1)
  - PERIPHERAL SENSORIMOTOR NEUROPATHY [None]
